FAERS Safety Report 4721684-4 (Version None)
Quarter: 2005Q3

REPORT INFORMATION
  Report Type: 
  Country: None (occurrence: None)
  Receive Date: 20050721
  Receipt Date: 20050223
  Transmission Date: 20060218
  Serious: No
  Sender: FDA-Public Use
  Company Number: US-BRISTOL-MYERS SQUIBB COMPANY-12873626

PATIENT
  Age: 77 Year
  Sex: Female
  Weight: 68 kg

DRUGS (1)
  1. COUMADIN [Suspect]
     Indication: TACHYCARDIA
     Dosage: 2.5 MG 5 DAYS PER WEEK AND 5 MG TWO DAYS PER WEEK
     Dates: start: 20010101

REACTIONS (1)
  - INTERNATIONAL NORMALISED RATIO FLUCTUATION [None]
